FAERS Safety Report 16419837 (Version 1)
Quarter: 2019Q3

REPORT INFORMATION
  Report Type: Spontaneous
  Country: US (occurrence: US)
  Receive Date: 20190611
  Receipt Date: 20190611
  Transmission Date: 20191004
  Serious: Yes (Other)
  Sender: FDA-Public Use
  Company Number: None

PATIENT
  Age: 37 Year
  Sex: Male

DRUGS (2)
  1. SUBOXONE [Suspect]
     Active Substance: BUPRENORPHINE HYDROCHLORIDE\NALOXONE HYDROCHLORIDE
     Indication: DRUG DEPENDENCE
     Route: 048
     Dates: start: 20190313, end: 20190611
  2. BUPRENORPHINE NALOXONE 8-2 MG TABLET S [Concomitant]
     Dates: start: 20190226, end: 20190312

REACTIONS (1)
  - Drug dependence [None]

NARRATIVE: CASE EVENT DATE: 20190611
